FAERS Safety Report 15402622 (Version 1)
Quarter: 2018Q3

REPORT INFORMATION
  Report Type: Report from Study
  Country: CO (occurrence: CO)
  Receive Date: 20180919
  Receipt Date: 20180919
  Transmission Date: 20181010
  Serious: Yes (Other)
  Sender: FDA-Public Use
  Company Number: CO-ACTELION-A-CH2018-179017

PATIENT
  Age: 66 Year
  Sex: Female
  Weight: 60 kg

DRUGS (2)
  1. RIOCIGUAT. [Suspect]
     Active Substance: RIOCIGUAT
     Indication: PULMONARY ARTERIAL HYPERTENSION
     Dosage: UNK
     Route: 065
     Dates: start: 20180507
  2. TRACLEER [Suspect]
     Active Substance: BOSENTAN
     Indication: PULMONARY ARTERIAL HYPERTENSION
     Dosage: 62.5 MG, BID
     Route: 048
     Dates: start: 20160328

REACTIONS (15)
  - Coagulopathy [Recovering/Resolving]
  - Hypotension [Recovering/Resolving]
  - Pulmonary artery occlusion [Recovering/Resolving]
  - Anxiety [Recovering/Resolving]
  - Fluid retention [Recovering/Resolving]
  - Hyponatraemia [Recovering/Resolving]
  - Coagulation time prolonged [Recovering/Resolving]
  - Peripheral swelling [Recovering/Resolving]
  - Fatigue [Recovering/Resolving]
  - Bronchitis [Recovering/Resolving]
  - Dizziness [Recovering/Resolving]
  - Swelling face [Recovering/Resolving]
  - Chest discomfort [Recovering/Resolving]
  - Constipation [Recovering/Resolving]
  - Feeling abnormal [Recovering/Resolving]

NARRATIVE: CASE EVENT DATE: 201603
